FAERS Safety Report 9369080 (Version 1)
Quarter: 2013Q2

REPORT INFORMATION
  Report Type: Spontaneous
  Country: GB (occurrence: GB)
  Receive Date: 20130626
  Receipt Date: 20130626
  Transmission Date: 20140414
  Serious: Yes (Hospitalization)
  Sender: FDA-Public Use
  Company Number: PHFR2013GB003623

PATIENT
  Age: 79 Year
  Sex: Male
  Weight: 81 kg

DRUGS (12)
  1. TERBINAFINE [Suspect]
     Indication: ONYCHOMYCOSIS
     Dosage: 250 MG, QD
     Route: 048
     Dates: start: 20130307, end: 20130605
  2. FOLIC ACID [Concomitant]
     Dosage: UNK UKN, UNK
  3. VITAMIN B COMPLEX [Concomitant]
     Dosage: UNK UKN, UNK
  4. BISOPROLOL [Concomitant]
     Dosage: UNK UKN, UNK
  5. SENNA [Concomitant]
     Dosage: UNK UKN, UNK
  6. THIAMINE [Concomitant]
     Dosage: UNK UKN, UNK
  7. SIMVASTATIN [Concomitant]
     Dosage: UNK UKN, UNK
  8. CLOPIDOGREL [Concomitant]
     Dosage: UNK UKN, UNK
  9. TRIMETHOPRIM [Concomitant]
     Indication: URINARY TRACT INFECTION
     Dosage: 200 MG, BID
     Dates: start: 20130530
  10. FUROSEMIDE [Concomitant]
     Dosage: UNK UKN, UNK
  11. MOVICOL [Concomitant]
     Dosage: UNK UKN, UNK
  12. CEFALEXIN [Concomitant]
     Indication: URINARY TRACT INFECTION
     Dosage: 500 MG, TID
     Dates: start: 20130515

REACTIONS (5)
  - Liver function test abnormal [Recovering/Resolving]
  - Drug dispensing error [Unknown]
  - General physical health deterioration [Unknown]
  - Urinary retention [Unknown]
  - Lethargy [Unknown]
